FAERS Safety Report 24332785 (Version 1)
Quarter: 2024Q3

REPORT INFORMATION
  Report Type: Spontaneous
  Country: US (occurrence: None)
  Receive Date: 20240917
  Receipt Date: 20240917
  Transmission Date: 20241016
  Serious: No
  Sender: Public
  Company Number: None

PATIENT
  Age: 43 Year
  Sex: Female

DRUGS (1)
  1. EMGALITY [Suspect]
     Active Substance: GALCANEZUMAB-GNLM
     Indication: Migraine
     Dosage: OTHER FREQUENCY : EVERY MONTH;?
     Route: 058

REACTIONS (3)
  - Burning sensation [None]
  - Product use complaint [None]
  - Injection site irritation [None]

NARRATIVE: CASE EVENT DATE: 20240901
